FAERS Safety Report 17982806 (Version 3)
Quarter: 2021Q2

REPORT INFORMATION
  Report Type: Spontaneous
  Country: GB (occurrence: GB)
  Receive Date: 20200706
  Receipt Date: 20210528
  Transmission Date: 20210717
  Serious: Yes (Other)
  Sender: FDA-Public Use
  Company Number: UK-ACCORD-000679

PATIENT
  Age: 54 Year
  Sex: Male

DRUGS (56)
  1. ALFENTANIL. [Suspect]
     Active Substance: ALFENTANIL
     Indication: ILL-DEFINED DISORDER
     Route: 042
     Dates: start: 2006
  2. FRAGMIN [Suspect]
     Active Substance: DALTEPARIN SODIUM
     Indication: ILL-DEFINED DISORDER
     Route: 058
     Dates: start: 2006
  3. SODIUM BICARBONATE. [Suspect]
     Active Substance: SODIUM BICARBONATE
     Indication: ILL-DEFINED DISORDER
     Dosage: ADMINISTRATION OVER AN HOUR
     Route: 042
     Dates: start: 2006
  4. TINZAPARIN/TINZAPARIN SODIUM [Suspect]
     Active Substance: TINZAPARIN SODIUM
     Indication: ILL-DEFINED DISORDER
     Dates: start: 2006
  5. AMOXICILLIN. [Concomitant]
     Active Substance: AMOXICILLIN
     Indication: ILL-DEFINED DISORDER
     Route: 048
     Dates: start: 20060913
  6. PANTOPRAZOLE [Concomitant]
     Active Substance: PANTOPRAZOLE
     Indication: ILL-DEFINED DISORDER
     Route: 042
  7. TAZOCIN [Concomitant]
     Active Substance: PIPERACILLIN SODIUM\TAZOBACTAM SODIUM
     Indication: ILL-DEFINED DISORDER
     Dosage: INCREASED TO 4 TIMES DAILY BETWEEN 04/10/2006 AND 09/10/2006
     Route: 042
  8. AMOXICILLIN. [Suspect]
     Active Substance: AMOXICILLIN
     Indication: ILL-DEFINED DISORDER
     Dosage: DAILY DOSE: 3 GRAM(S), 1 G, TID
     Route: 042
     Dates: start: 20060913
  9. FUROSEMIDE. [Suspect]
     Active Substance: FUROSEMIDE
     Indication: ILL-DEFINED DISORDER
     Dosage: DAILY DOSE: 40 MILLIGRAM(S), 20 MG, QD
     Route: 042
     Dates: start: 2006
  10. ROCEPHIN [Suspect]
     Active Substance: CEFTRIAXONE SODIUM
     Indication: ILL-DEFINED DISORDER
     Route: 042
     Dates: start: 2006
  11. NOREPINEPHRINE. [Suspect]
     Active Substance: NOREPINEPHRINE
     Indication: ILL-DEFINED DISORDER
     Dates: start: 2006
  12. PHYTOMENADIONE [Suspect]
     Active Substance: PHYTONADIONE
     Indication: ILL-DEFINED DISORDER
     Dosage: DAILY DOSE: UNKNOWN
     Route: 065
     Dates: start: 2006
  13. SANDO K (POTASSIUM CHLORIDE) [Suspect]
     Active Substance: POTASSIUM CHLORIDE
     Indication: PRODUCT USED FOR UNKNOWN INDICATION
     Route: 061
  14. BACTROBAN [Suspect]
     Active Substance: MUPIROCIN\MUPIROCIN CALCIUM
     Indication: ILL-DEFINED DISORDER
     Dates: start: 2006
  15. SANDO K [POTASSIUM CHLORIDE] [Suspect]
     Active Substance: POTASSIUM
     Indication: ILL-DEFINED DISORDER
     Dosage: DAILY DOSE: 6 DOSAGE FORM, 2 DF, TID,ALSO 8 HOURLY
     Route: 061
     Dates: start: 2006
  16. SIMVASTATIN. [Suspect]
     Active Substance: SIMVASTATIN
     Indication: ILL-DEFINED DISORDER
     Route: 042
     Dates: start: 2006
  17. CIPROFLOX [Concomitant]
     Active Substance: CIPROFLOXACIN HYDROCHLORIDE
     Indication: ILL-DEFINED DISORDER
     Route: 042
  18. PIRITON [Suspect]
     Active Substance: CHLORPHENIRAMINE MALEATE
     Indication: ILL-DEFINED DISORDER
     Dosage: DAILY DOSE: 40 MILLIGRAM(S), 10 MG, QID
     Route: 042
     Dates: start: 2006
  19. FLUCONAZOLE. [Suspect]
     Active Substance: FLUCONAZOLE
     Indication: ILL-DEFINED DISORDER
     Route: 042
     Dates: start: 2006
  20. PARACETAMOL [Suspect]
     Active Substance: ACETAMINOPHEN
     Indication: ILL-DEFINED DISORDER
     Dates: start: 2006
  21. HYDROCORTISONE. [Suspect]
     Active Substance: HYDROCORTISONE
     Indication: ILL-DEFINED DISORDER
     Dosage: DAILY DOSE: 100 MILLIGRAM(S), 100 MG, QD
     Route: 042
     Dates: start: 2006
  22. POTASSIUM [Suspect]
     Active Substance: POTASSIUM
     Indication: ILL-DEFINED DISORDER
     Dosage: STRENGTH?40MMOLS/100ML INFUSION
     Dates: start: 2006
  23. PROPOFOL. [Suspect]
     Active Substance: PROPOFOL
     Indication: ILL-DEFINED DISORDER
     Dates: start: 2006
  24. ACETYLSALICYLIC ACID [Concomitant]
     Active Substance: ASPIRIN
     Indication: ILL-DEFINED DISORDER
     Route: 048
  25. ACTRAPID [Suspect]
     Active Substance: INSULIN HUMAN
     Indication: TOXIC EPIDERMAL NECROLYSIS
     Dosage: STRENGTH?50 UNITS/50ML,INTRAVENOUS INFUSION
     Route: 042
     Dates: start: 2006
  26. AMOXICILLIN. [Suspect]
     Active Substance: AMOXICILLIN
     Indication: ILL-DEFINED DISORDER
     Dosage: DAILY DOSE: 3 GRAM(S), 1 G, TID
     Route: 042
     Dates: start: 20060913
  27. CALCIUM CHLORIDE DIHYDRATE [Suspect]
     Active Substance: CALCIUM CHLORIDE
     Indication: ILL-DEFINED DISORDER
     Dates: start: 2006
  28. DOBUTAMINE [Suspect]
     Active Substance: DOBUTAMINE HYDROCHLORIDE
     Indication: ILL-DEFINED DISORDER
     Dates: start: 2006
  29. LACTULOSE. [Suspect]
     Active Substance: LACTULOSE
     Indication: ILL-DEFINED DISORDER
     Dates: start: 2006
  30. LANSOPRAZOLE. [Suspect]
     Active Substance: LANSOPRAZOLE
     Indication: ILL-DEFINED DISORDER
     Dosage: DAILY DOSE: 30 MG
     Dates: start: 2006
  31. SILVER SULPHADIAZINE [Suspect]
     Active Substance: SILVER SULFADIAZINE
     Indication: ILL-DEFINED DISORDER
     Route: 061
     Dates: start: 2006
  32. AMOXICILLIN SODIUM/CLAVULANATE POTASSIUM [Concomitant]
     Active Substance: AMOXICILLIN\CLAVULANATE POTASSIUM
     Indication: ILL-DEFINED DISORDER
     Dosage: DAILY DOSE: 1125 MILLIGRAM(S), 375 MG, TID
     Dates: start: 20060913
  33. ERYTHROMYCIN. [Concomitant]
     Active Substance: ERYTHROMYCIN
     Indication: ILL-DEFINED DISORDER
     Dosage: NASOGASTRIC ROUTE
  34. MIDODRINE [Concomitant]
     Active Substance: MIDODRINE
     Indication: ILL-DEFINED DISORDER
     Route: 048
  35. TAZOCIN [Concomitant]
     Active Substance: PIPERACILLIN SODIUM\TAZOBACTAM SODIUM
     Indication: ILL-DEFINED DISORDER
     Dosage: INCREASED TO 4 TIMES DAILY BETWEEN 04/10/2006 AND 09/10/2006
     Route: 042
     Dates: start: 2006
  36. VANCOMYCIN [Concomitant]
     Active Substance: VANCOMYCIN
     Indication: ILL-DEFINED DISORDER
     Route: 042
  37. TAZOCIN [Concomitant]
     Active Substance: PIPERACILLIN SODIUM\TAZOBACTAM SODIUM
     Indication: ILL-DEFINED DISORDER
     Dosage: INCREASED TO 4 TIMES DAILY BETWEEN 04/10/2006 AND 09/10/2006
     Route: 042
     Dates: start: 2006
  38. SANDO K (POTASSIUM CHLORIDE) [Suspect]
     Active Substance: POTASSIUM CHLORIDE
     Indication: ILL-DEFINED DISORDER
     Dosage: DAILY DOSE: 6 DOSAGE FORM, 2 DF, TID,ALSO 8 HOURLY
     Route: 061
     Dates: start: 2006
  39. AQUASEPT [Suspect]
     Active Substance: TRICLOSAN
     Indication: ILL-DEFINED DISORDER
     Dates: start: 2006
  40. MAGNESIUM SULFATE. [Suspect]
     Active Substance: MAGNESIUM SULFATE
     Indication: ILL-DEFINED DISORDER
     Dosage: 10ML/50% 8MMOLS/50MLS
     Route: 065
     Dates: start: 2006
  41. PIRITON [Suspect]
     Active Substance: CHLORPHENIRAMINE MALEATE
     Indication: ILL-DEFINED DISORDER
     Dosage: DAILY DOSE: 40 MILLIGRAM(S), 10 MG, QID
     Route: 042
     Dates: start: 2006
  42. THIAMINE. [Suspect]
     Active Substance: THIAMINE
     Indication: ILL-DEFINED DISORDER
     Route: 048
     Dates: start: 2006
  43. METOCLOPRAMIDE. [Concomitant]
     Active Substance: METOCLOPRAMIDE
     Indication: ILL-DEFINED DISORDER
     Route: 042
  44. ZOPICLONE [Concomitant]
     Active Substance: ZOPICLONE
     Indication: ILL-DEFINED DISORDER
     Route: 048
  45. CALCIUM GLUCONATE. [Suspect]
     Active Substance: CALCIUM GLUCONATE
     Indication: ILL-DEFINED DISORDER
     Route: 042
     Dates: start: 2006
  46. CLEXANE [Suspect]
     Active Substance: ENOXAPARIN SODIUM
     Indication: ILL-DEFINED DISORDER
     Route: 058
     Dates: start: 2006
  47. HEPARIN [Suspect]
     Active Substance: HEPARIN SODIUM
     Indication: PRODUCT USED FOR UNKNOWN INDICATION
     Dosage: 3500 MICROGRAM, QD
     Route: 065
  48. OMEPRAZOLE. [Suspect]
     Active Substance: OMEPRAZOLE
     Indication: ILL-DEFINED DISORDER
     Route: 042
     Dates: start: 2006
  49. POTASSIUM PHOSPHATE DIBASIC [Suspect]
     Active Substance: POTASSIUM PHOSPHATE, DIBASIC
     Indication: ILL-DEFINED DISORDER
     Dates: start: 2006
  50. SALBUTAMOL [Suspect]
     Active Substance: ALBUTEROL
     Indication: ILL-DEFINED DISORDER
     Dates: start: 2006
  51. FUROSEMIDE. [Suspect]
     Active Substance: FUROSEMIDE
     Indication: ILL-DEFINED DISORDER
     Route: 048
     Dates: start: 2006
  52. AMOXICILLIN SODIUM/CLAVULANATE POTASSIUM [Concomitant]
     Active Substance: AMOXICILLIN\CLAVULANATE POTASSIUM
     Indication: ILL-DEFINED DISORDER
     Dosage: DAILY DOSE: 1125 MILLIGRAM(S), 375 MG, TID
     Route: 065
     Dates: start: 20060913
  53. LORAZEPAM. [Suspect]
     Active Substance: LORAZEPAM
     Indication: ILL-DEFINED DISORDER
     Dosage: 1?2MG ONCE ONLY
     Dates: start: 2006
  54. SODIUM CHLORIDE. [Suspect]
     Active Substance: SODIUM CHLORIDE
     Indication: ILL-DEFINED DISORDER
     Dosage: 0.9 PER CENT SOLUTION
     Route: 042
     Dates: start: 2006
  55. ATROVENT [Concomitant]
     Active Substance: IPRATROPIUM BROMIDE
     Indication: ILL-DEFINED DISORDER
     Dosage: NEBULISER
     Route: 048
  56. FUROSEMIDE. [Suspect]
     Active Substance: FUROSEMIDE
     Indication: ILL-DEFINED DISORDER
     Dosage: DAILY DOSE: 40 MILLIGRAM(S), 20 MG, QD
     Route: 042
     Dates: start: 2006

REACTIONS (1)
  - Toxic epidermal necrolysis [Unknown]

NARRATIVE: CASE EVENT DATE: 2006
